FAERS Safety Report 19313479 (Version 4)
Quarter: 2021Q3

REPORT INFORMATION
  Report Type: Report from Study
  Country: US (occurrence: US)
  Receive Date: 20210527
  Receipt Date: 20210723
  Transmission Date: 20211014
  Serious: No
  Sender: FDA-Public Use
  Company Number: US-AGIOS-2105US02806

PATIENT

DRUGS (15)
  1. SERTRALINE [Concomitant]
     Active Substance: SERTRALINE HYDROCHLORIDE
  2. GLIMEPIRIDE. [Concomitant]
     Active Substance: GLIMEPIRIDE
  3. VITAMIN D                          /00107901/ [Concomitant]
     Active Substance: ERGOCALCIFEROL
  4. SENNA                              /00142201/ [Concomitant]
     Active Substance: SENNA LEAF
  5. LOPERAMIDE [Concomitant]
     Active Substance: LOPERAMIDE
  6. CALCIUM [Concomitant]
     Active Substance: CALCIUM
  7. ALBUTEROL                          /00139501/ [Concomitant]
     Active Substance: ALBUTEROL
  8. VITAMIN C [Concomitant]
     Active Substance: ASCORBIC ACID
  9. PSYLLIUM HUSK                      /00029102/ [Concomitant]
     Active Substance: HERBALS\PLANTAGO OVATA SEED COAT
  10. OSTEO BI?FLEX                      /01431201/ [Concomitant]
  11. FISH OIL [Concomitant]
     Active Substance: FISH OIL
  12. ALIGN [Concomitant]
     Active Substance: BIFIDOBACTERIUM LONGUM SUBSP. INFANTIS
  13. SYMBICORT [Concomitant]
     Active Substance: BUDESONIDE\FORMOTEROL FUMARATE DIHYDRATE
  14. ESTRACE [Concomitant]
     Active Substance: ESTRADIOL
  15. TIBSOVO [Suspect]
     Active Substance: IVOSIDENIB
     Indication: CHOLANGIOCARCINOMA
     Dosage: 500 MILLIGRAM (TWO 250MG TABLETS), QD
     Route: 048
     Dates: start: 20191211

REACTIONS (2)
  - Diarrhoea [Unknown]
  - Off label use [Unknown]
